FAERS Safety Report 23089403 (Version 1)
Quarter: 2023Q4

REPORT INFORMATION
  Report Type: Report from Study
  Country: US (occurrence: US)
  Receive Date: 20231020
  Receipt Date: 20231020
  Transmission Date: 20240110
  Serious: Yes (Other)
  Sender: FDA-Public Use
  Company Number: US-JNJFOC-20231028744

PATIENT
  Age: 75 Year
  Sex: Female

DRUGS (1)
  1. BORTEZOMIB [Suspect]
     Active Substance: BORTEZOMIB
     Indication: Plasma cell myeloma
     Dosage: UNK
     Route: 065

REACTIONS (10)
  - Pancytopenia [Unknown]
  - Hypokalaemia [Unknown]
  - Asthenia [Unknown]
  - Abdominal pain [Unknown]
  - Abdominal distension [Unknown]
  - Dizziness [Unknown]
  - Decreased appetite [Unknown]
  - Blood magnesium decreased [Unknown]
  - Dysuria [Unknown]
  - Blood creatinine increased [Unknown]
